FAERS Safety Report 7670816-7 (Version None)
Quarter: 2011Q3

REPORT INFORMATION
  Report Type: 
  Country: None (occurrence: None)
  Receive Date: 20110803
  Receipt Date: 20110728
  Transmission Date: 20111222
  Serious: Yes (Other)
  Sender: FDA-Public Use
  Company Number: CIP11001409

PATIENT
  Age: 80 Year
  Sex: Female

DRUGS (8)
  1. ASZES NICHIIKO (FELBINAC) [Concomitant]
  2. DRUGS FOR FUNCTIONAL GASTROINTEST. DISORDERS [Concomitant]
  3. CALCICHEW (CALCIUM CARBONATE) [Concomitant]
  4. ACTONEL [Suspect]
     Indication: OSTEOPOROSIS
     Dosage: 2.5 MG DAILY, ORALLY, 2.5 MG DAILY, ORAL
     Route: 048
     Dates: start: 20100426, end: 20110407
  5. ACTONEL [Suspect]
     Indication: OSTEOPOROSIS
     Dosage: 2.5 MG DAILY, ORALLY, 2.5 MG DAILY, ORAL
     Route: 048
     Dates: start: 20080714, end: 20100218
  6. FAMOSTAGINE (FAMOTIDINE) [Concomitant]
  7. CALCIUM + VITAMIN D (CALCIUM, COLECALCIFEROL) [Concomitant]
  8. GOREI-SAN (HERBAL EXTRACT NOS) [Concomitant]

REACTIONS (14)
  - BRONCHITIS [None]
  - INTERSTITIAL LUNG DISEASE [None]
  - OROPHARYNGEAL PAIN [None]
  - ASTHMA [None]
  - LUNG NEOPLASM [None]
  - PRODUCTIVE COUGH [None]
  - LYMPHADENITIS [None]
  - BLOOD LACTATE DEHYDROGENASE INCREASED [None]
  - NASOPHARYNGITIS [None]
  - TREATMENT NONCOMPLIANCE [None]
  - UPPER RESPIRATORY TRACT INFLAMMATION [None]
  - CHRONIC OBSTRUCTIVE PULMONARY DISEASE [None]
  - LUNG CYST [None]
  - RHEUMATOID FACTOR POSITIVE [None]
